FAERS Safety Report 16142257 (Version 1)
Quarter: 2019Q2

REPORT INFORMATION
  Report Type: Spontaneous
  Country: US (occurrence: US)
  Receive Date: 20190401
  Receipt Date: 20190401
  Transmission Date: 20190711
  Serious: No
  Sender: FDA-Public Use
  Company Number: US-SA-2019SA086722

PATIENT
  Age: 41 Year
  Sex: Female

DRUGS (1)
  1. KEVZARA [Suspect]
     Active Substance: SARILUMAB
     Indication: RHEUMATOID ARTHRITIS
     Dosage: 200 MG, QOW
     Route: 058
     Dates: start: 20190302, end: 20190316

REACTIONS (5)
  - Injection site pain [Unknown]
  - Injection site vesicles [Unknown]
  - Skin exfoliation [Unknown]
  - Injection site pruritus [Unknown]
  - Injection site erythema [Unknown]

NARRATIVE: CASE EVENT DATE: 201903
